FAERS Safety Report 21490166 (Version 1)
Quarter: 2022Q4

REPORT INFORMATION
  Report Type: Spontaneous
  Country: GB (occurrence: GB)
  Receive Date: 20221021
  Receipt Date: 20221021
  Transmission Date: 20230112
  Serious: Yes (Other)
  Sender: FDA-Public Use
  Company Number: GB-MHRA-ADR 27371620

PATIENT
  Age: 72 Year
  Sex: Female
  Weight: 89 kg

DRUGS (1)
  1. BISOPROLOL [Suspect]
     Active Substance: BISOPROLOL
     Indication: Extrasystoles
     Dosage: 2.5 NIGHT. 1.25 MORNING
     Route: 065
     Dates: start: 20220504

REACTIONS (2)
  - Tachycardia [Recovering/Resolving]
  - Dry mouth [Not Recovered/Not Resolved]

NARRATIVE: CASE EVENT DATE: 20220809
